FAERS Safety Report 17752207 (Version 3)
Quarter: 2020Q3

REPORT INFORMATION
  Report Type: Spontaneous
  Country: GB (occurrence: GB)
  Receive Date: 20200506
  Receipt Date: 20200716
  Transmission Date: 20201102
  Serious: Yes (Hospitalization)
  Sender: FDA-Public Use
  Company Number: GB-MYLANLABS-2020M1044868

PATIENT
  Age: 55 Year
  Sex: Female

DRUGS (1)
  1. CLOZARIL [Suspect]
     Active Substance: CLOZAPINE
     Indication: SCHIZOPHRENIA
     Dosage: UNK
     Route: 048
     Dates: start: 20100326, end: 20200409

REACTIONS (1)
  - Schizophrenia [Unknown]

NARRATIVE: CASE EVENT DATE: 20200408
